FAERS Safety Report 21890191 (Version 1)
Quarter: 2023Q1

REPORT INFORMATION
  Report Type: Spontaneous
  Country: US (occurrence: US)
  Receive Date: 20230120
  Receipt Date: 20230120
  Transmission Date: 20230418
  Serious: No
  Sender: FDA-Public Use
  Company Number: US-SA-SAC20230118001563

PATIENT
  Sex: Female
  Weight: 74.4 kg

DRUGS (62)
  1. DUPIXENT [Suspect]
     Active Substance: DUPILUMAB
     Indication: Asthma
     Dosage: 300 MG, QOW
     Route: 058
  2. SHINGRIX [Concomitant]
     Active Substance: RECOMBINANT VARICELLA ZOSTER VIRUS (VZV) GLYCOPROTEIN E
  3. TRELEGY ELLIPTA [Concomitant]
     Active Substance: FLUTICASONE FUROATE\UMECLIDINIUM BROMIDE\VILANTEROL TRIFENATATE
  4. NORTRIPTYLINE HYDROCHLORIDE [Concomitant]
     Active Substance: NORTRIPTYLINE HYDROCHLORIDE
  5. HYDROCHLOROTHIAZIDE\IRBESARTAN [Concomitant]
     Active Substance: HYDROCHLOROTHIAZIDE\IRBESARTAN
  6. NUCALA [Concomitant]
     Active Substance: MEPOLIZUMAB
  7. TRIAMCINOLONE ACETONIDE [Concomitant]
     Active Substance: TRIAMCINOLONE ACETONIDE
  8. NITROFURANTOIN MONOHYDRATE MACROCRYSTALS [Concomitant]
     Active Substance: NITROFURANTOIN\NITROFURANTOIN MONOHYDRATE
  9. ACYCLOVIR [Concomitant]
     Active Substance: ACYCLOVIR
  10. BEVESPI AEROSPHERE [Concomitant]
     Active Substance: FORMOTEROL FUMARATE\GLYCOPYRROLATE
  11. NYSTATIN [Concomitant]
     Active Substance: NYSTATIN
  12. HYDROCHLOROTHIAZIDE\LOSARTAN [Concomitant]
     Active Substance: HYDROCHLOROTHIAZIDE\LOSARTAN
  13. PYRIDIUM [Concomitant]
     Active Substance: PHENAZOPYRIDINE
  14. ZOLOFT [Concomitant]
     Active Substance: SERTRALINE HYDROCHLORIDE
  15. FLUTICASONE PROPIONATE [Concomitant]
     Active Substance: FLUTICASONE PROPIONATE
     Dosage: 50MG
  16. ADVAIR HFA [Concomitant]
     Active Substance: FLUTICASONE PROPIONATE\SALMETEROL XINAFOATE
  17. PANTOPRAZOLE SODIUM ANHYDROUS [Concomitant]
     Active Substance: PANTOPRAZOLE SODIUM ANHYDROUS
  18. ZOVIRAX ACTIVE [Concomitant]
  19. ACETAMINOPHEN\HYDROCODONE [Concomitant]
     Active Substance: ACETAMINOPHEN\HYDROCODONE
  20. NORTRIPTYLINE HYDROCHLORIDE [Concomitant]
     Active Substance: NORTRIPTYLINE HYDROCHLORIDE
  21. ZITHROMAX [Concomitant]
     Active Substance: AZITHROMYCIN DIHYDRATE
  22. DRISDOL [Concomitant]
     Active Substance: ERGOCALCIFEROL
  23. CIPROFLOXACIN HYDROCHLORIDE [Concomitant]
     Active Substance: CIPROFLOXACIN HYDROCHLORIDE
     Dosage: 250MG
  24. ALBUTEROL SULFATE [Concomitant]
     Active Substance: ALBUTEROL SULFATE
  25. STIOLTO RESPIMAT [Concomitant]
     Active Substance: OLODATEROL HYDROCHLORIDE\TIOTROPIUM BROMIDE MONOHYDRATE
  26. ANORO ELLIPTA [Concomitant]
     Active Substance: UMECLIDINIUM BROMIDE\VILANTEROL TRIFENATATE
  27. CEFUROXIME [Concomitant]
     Active Substance: CEFUROXIME
  28. LORATADINE [Concomitant]
     Active Substance: LORATADINE
  29. IBUPROFEN [Concomitant]
     Active Substance: IBUPROFEN
  30. SPIRIVA [Concomitant]
     Active Substance: TIOTROPIUM BROMIDE MONOHYDRATE
  31. WELLBUTRIN SR [Concomitant]
     Active Substance: BUPROPION HYDROCHLORIDE
  32. CHANTIX [Concomitant]
     Active Substance: VARENICLINE TARTRATE
     Dosage: CHANTIX 1 MG TABLET, CHANTIX 0.5 (11)-1 TAB DS PK
  33. DULERA [Concomitant]
     Active Substance: FORMOTEROL FUMARATE DIHYDRATE\MOMETASONE FUROATE
  34. LOPERAMIDE HYDROCHLORIDE [Concomitant]
     Active Substance: LOPERAMIDE HYDROCHLORIDE
  35. LORATADINE [Concomitant]
     Active Substance: LORATADINE
  36. CITALOPRAM [Concomitant]
     Active Substance: CITALOPRAM HYDROBROMIDE
  37. CYMBALTA [Concomitant]
     Active Substance: DULOXETINE HYDROCHLORIDE
  38. BACTRIM [Concomitant]
     Active Substance: SULFAMETHOXAZOLE\TRIMETHOPRIM
  39. HYOSCYAMINE SULFATE [Concomitant]
     Active Substance: HYOSCYAMINE SULFATE
  40. SYMBICORT [Concomitant]
     Active Substance: BUDESONIDE\FORMOTEROL FUMARATE DIHYDRATE
  41. SULFAMETHOXAZOLE\TRIMETHOPRIM [Concomitant]
     Active Substance: SULFAMETHOXAZOLE\TRIMETHOPRIM
  42. CIPROFLOXACIN LACTATE [Concomitant]
     Active Substance: CIPROFLOXACIN LACTATE
  43. DIOVAN HCT [Concomitant]
     Active Substance: HYDROCHLOROTHIAZIDE\VALSARTAN
  44. DIFLUCAN [Concomitant]
     Active Substance: FLUCONAZOLE
  45. PREDNISONE [Concomitant]
     Active Substance: PREDNISONE
  46. XANAX [Concomitant]
     Active Substance: ALPRAZOLAM
  47. CARISOPRODOL [Concomitant]
     Active Substance: CARISOPRODOL
  48. PROAIR HFA [Concomitant]
     Active Substance: ALBUTEROL SULFATE
  49. LOPRESSOR [Concomitant]
     Active Substance: METOPROLOL TARTRATE
  50. AMOXICILLIN [Concomitant]
     Active Substance: AMOXICILLIN
  51. DIOVAN [Concomitant]
     Active Substance: VALSARTAN
  52. MACROBID [Concomitant]
     Active Substance: NITROFURANTOIN\NITROFURANTOIN MONOHYDRATE
  53. VENTOLIN HFA [Concomitant]
     Active Substance: ALBUTEROL SULFATE
  54. VITAMIN C [Concomitant]
     Active Substance: ASCORBIC ACID
  55. HIPREX DUO [Concomitant]
  56. WELLBUTRIN SR [Concomitant]
     Active Substance: BUPROPION HYDROCHLORIDE
  57. BACTRIM [Concomitant]
     Active Substance: SULFAMETHOXAZOLE\TRIMETHOPRIM
  58. MAGOX [Concomitant]
  59. NYSTATIN [Concomitant]
     Active Substance: NYSTATIN
  60. KLOR-CON M20 [Concomitant]
     Active Substance: POTASSIUM CHLORIDE
     Dosage: KLOR-CON M20 20 MEQ TAB PRT SR
  61. MAXITROL [Concomitant]
     Active Substance: DEXAMETHASONE\NEOMYCIN SULFATE\POLYMYXIN B SULFATE
  62. THERA D [Concomitant]

REACTIONS (1)
  - Injection site pain [Unknown]
